FAERS Safety Report 6510804-7 (Version None)
Quarter: 2009Q4

REPORT INFORMATION
  Report Type: 
  Country: None (occurrence: None)
  Receive Date: 20091222
  Receipt Date: 20090121
  Transmission Date: 20100525
  Serious: No
  Sender: FDA-Public Use
  Company Number: US-ASTRAZENECA-2009UW02025

PATIENT
  Age: 81 Year
  Sex: Female
  Weight: 77.1 kg

DRUGS (7)
  1. CRESTOR [Suspect]
     Indication: BLOOD CHOLESTEROL INCREASED
     Route: 048
     Dates: start: 20080701, end: 20081101
  2. NIACIN [Concomitant]
     Indication: BLOOD CHOLESTEROL INCREASED
  3. ATENOLOL [Concomitant]
     Indication: HYPERTENSION
  4. LEVOTHYROXINE SODIUM [Concomitant]
     Indication: HYPOTHYROIDISM
  5. NEXIUM [Concomitant]
     Indication: ILL-DEFINED DISORDER
     Route: 048
  6. HYZAAR [Concomitant]
     Indication: HYPERTENSION
  7. PLAVIX [Concomitant]
     Indication: CARDIAC DISORDER

REACTIONS (3)
  - LETHARGY [None]
  - MUSCLE SPASMS [None]
  - PAIN [None]
